FAERS Safety Report 10447836 (Version 2)
Quarter: 2014Q4

REPORT INFORMATION
  Report Type: Report from Study
  Country: IL (occurrence: IL)
  Receive Date: 20140911
  Receipt Date: 20141023
  Transmission Date: 20150528
  Serious: Yes (Hospitalization)
  Sender: FDA-Public Use
  Company Number: IL-PFIZER INC-2014245100

PATIENT
  Age: 62 Year
  Sex: Male
  Weight: 57 kg

DRUGS (19)
  1. FLUOROURACIL. [Suspect]
     Active Substance: FLUOROURACIL
     Dosage: 2400 MG/M2, ON DAYS 1, 15, 29, 43 IN CYCLE 1 AND DAYS 1, 15 EVERY 28 DAYS IN CYCLE 2 AND BEYOND
     Route: 041
     Dates: start: 20131006, end: 20140521
  2. FENTA [Concomitant]
     Dosage: UNK
     Dates: start: 20130827
  3. ZINAT [Concomitant]
     Active Substance: CEFUROXIME AXETIL
     Dosage: UNK
     Dates: start: 20131215
  4. FLUOROURACIL. [Suspect]
     Active Substance: FLUOROURACIL
     Indication: PANCREATIC CARCINOMA
     Dosage: 400 MG/M2, ON DAYS 1, 15, 29, 43 IN CYCLE 1 AND DAYS 1, 15 EVERY 28 DAYS IN CYCLE 2 AND BEYOND
     Route: 040
     Dates: start: 20131006, end: 20140521
  5. BLINDED THERAPY [Suspect]
     Active Substance: INVESTIGATIONAL PRODUCT
     Dosage: DAYS 1, 15, 29, 43 IN CYCLE 1 AND DAYS 1, 15 EVERY 28 DAYS IN CYCLE 2 AND BEYOND
     Route: 042
     Dates: start: 20140622, end: 20140730
  6. EMEND [Concomitant]
     Active Substance: APREPITANT
     Dosage: UNK
     Dates: start: 20131023
  7. OPTALGIN [Concomitant]
     Active Substance: METAMIZOLE
     Dosage: UNK
     Dates: start: 20130827
  8. GABAPENTIN. [Concomitant]
     Active Substance: GABAPENTIN
     Dosage: UNK
     Dates: start: 20131028
  9. LEUCOVORIN [Suspect]
     Active Substance: LEUCOVORIN
     Indication: PANCREATIC CARCINOMA
     Dosage: 400 MG/M2, ON DAYS 1, 15, 29, 43 IN CYCLE 1 AND DAYS 1, 15 EVERY 28 DAYS IN CYCLE 2 AND BEYOND
     Route: 042
     Dates: start: 20131006, end: 20140521
  10. BLINDED THERAPY [Suspect]
     Active Substance: INVESTIGATIONAL PRODUCT
     Indication: PANCREATIC CARCINOMA
     Dosage: DAYS 1, 15, 29, 43 IN CYCLE 1 AND DAYS 1, 15 EVERY 28 DAYS IN CYCLE 2 AND BEYOND
     Route: 042
     Dates: start: 20131006, end: 20140521
  11. LAXADIN [Concomitant]
     Dosage: UNK
     Dates: start: 20131023
  12. IRINOTECAN HCL [Suspect]
     Active Substance: IRINOTECAN HYDROCHLORIDE
     Indication: PANCREATIC CARCINOMA
     Dosage: 145 MG/M2, ON DAYS 1, 15, 29, 43 IN CYCLE 1 AND DAYS 1, 15 EVERY 28 DAYS IN CYCLE 2 AND BEYOND
     Route: 042
     Dates: start: 20131006, end: 20140521
  13. LOSEC [Concomitant]
     Active Substance: OMEPRAZOLE
     Dosage: UNK
     Dates: start: 20131215
  14. OXALIPLATIN. [Suspect]
     Active Substance: OXALIPLATIN
     Indication: PANCREATIC CARCINOMA
     Dosage: 60 MG/M2, ON DAYS 1, 15, 29, 43 IN CYCLE 1 AND DAYS 1, 15 EVERY 28 DAYS IN CYCLE 2 AND BEYOND
     Route: 042
     Dates: start: 20131006, end: 20140521
  15. ERLOTINIB [Suspect]
     Active Substance: ERLOTINIB
     Indication: PANCREATIC CARCINOMA
     Dosage: 100 MG, DAILY
     Route: 048
     Dates: start: 20140622, end: 20140820
  16. GEMCITABINE [Suspect]
     Active Substance: GEMCITABINE\GEMCITABINE HYDROCHLORIDE
     Indication: PANCREATIC CARCINOMA
     Dosage: UNK MG/M2 (ON DAYS 1, 8, 15 EVERY 28 DAYS CYCLE)
     Route: 042
     Dates: start: 20140622, end: 20140730
  17. NORMALAX [Concomitant]
     Dosage: UNK
     Dates: start: 20131023
  18. PRAMIN [Concomitant]
     Dosage: UNK
     Dates: start: 20131023
  19. OXYCONTIN [Concomitant]
     Active Substance: OXYCODONE HYDROCHLORIDE
     Dosage: UNK
     Dates: start: 20131023

REACTIONS (1)
  - Obstruction gastric [Recovered/Resolved]

NARRATIVE: CASE EVENT DATE: 20140815
